FAERS Safety Report 4668564-0 (Version None)
Quarter: 2005Q2

REPORT INFORMATION
  Report Type: 
  Country: None (occurrence: None)
  Receive Date: 20050523
  Receipt Date: 20040630
  Transmission Date: 20051028
  Serious: Yes (Other)
  Sender: FDA-Public Use
  Company Number: PHNU2004DE02331

PATIENT
  Sex: Female
  Weight: 50 kg

DRUGS (5)
  1. ZOMETA [Suspect]
     Indication: PLASMACYTOMA
     Dosage: 4 MG, QMO
     Dates: start: 20010901
  2. VELCADE [Concomitant]
     Indication: PLASMACYTOMA
     Dosage: 2 MG, QD
     Route: 065
     Dates: start: 20040601
  3. BENDAMUSTINE [Concomitant]
     Indication: PLASMACYTOMA
     Dosage: 100 MG, QW
     Route: 065
     Dates: start: 20021201, end: 20031201
  4. CHEMOTHERAPEUTICS,OTHER [Concomitant]
     Route: 065
  5. CORTICOSTEROIDS [Concomitant]
     Route: 065

REACTIONS (3)
  - FACE AND MOUTH X-RAY ABNORMAL [None]
  - OSTEITIS [None]
  - OSTEONECROSIS [None]
